FAERS Safety Report 18186444 (Version 1)
Quarter: 2020Q3

REPORT INFORMATION
  Report Type: Spontaneous
  Country: US (occurrence: US)
  Receive Date: 20200824
  Receipt Date: 20200824
  Transmission Date: 20201103
  Serious: Yes (Life-Threatening, Hospitalization)
  Sender: FDA-Public Use
  Company Number: US-STRIDES ARCOLAB LIMITED-2015SP001779

PATIENT
  Age: 20 Year
  Sex: Male
  Weight: 80 kg

DRUGS (22)
  1. ETOMIDATE. [Concomitant]
     Active Substance: ETOMIDATE
     Indication: SEDATIVE THERAPY
     Dosage: 40 SEDATIVE HYPNOTIC DOSES OF
     Route: 042
  2. SUCCINYLCHOLINE [Concomitant]
     Active Substance: SUCCINYLCHOLINE
     Indication: ENDOTRACHEAL INTUBATION
     Dosage: 100 MG, UNK
     Route: 042
  3. FLUOXETINE [Interacting]
     Active Substance: FLUOXETINE HYDROCHLORIDE
     Indication: DEPRESSION
     Dosage: 40 MG, QD
     Route: 065
  4. METHYLENE BLUE. [Interacting]
     Active Substance: METHYLENE BLUE
     Indication: PRODUCT USED FOR UNKNOWN INDICATION
     Dosage: 100 MG, ADMINISTERED TWICE
     Route: 042
  5. CEFAZOLIN [Concomitant]
     Active Substance: CEFAZOLIN
     Indication: PRODUCT USED FOR UNKNOWN INDICATION
     Dosage: 2 G, UNK
     Route: 042
  6. ONDANSETRON HYDROCHLORIDE. [Interacting]
     Active Substance: ONDANSETRON HYDROCHLORIDE
     Dosage: UNK
     Route: 065
  7. FENTANYL. [Interacting]
     Active Substance: FENTANYL
     Indication: PAIN
     Dosage: 100 MICROGRAM IN DIVIDED DOSES
     Route: 065
  8. MIDAZOLAM. [Concomitant]
     Active Substance: MIDAZOLAM
     Indication: GENERAL ANAESTHESIA
     Dosage: 2 MG, UNK
     Route: 042
  9. MIDAZOLAM. [Concomitant]
     Active Substance: MIDAZOLAM
     Indication: SEDATIVE THERAPY
  10. PROPOFOL. [Concomitant]
     Active Substance: PROPOFOL
     Indication: GENERAL ANAESTHESIA
     Dosage: 100 MG, UNK
     Route: 042
  11. SEVOFLURANE. [Concomitant]
     Active Substance: SEVOFLURANE
     Indication: ANAESTHESIA
     Dosage: 2.4%?2.9% INSPIRED; OXYGEN:AIR = 1 L:1 L
     Route: 065
  12. HYDROMORPHONE [Concomitant]
     Active Substance: HYDROMORPHONE
     Indication: ANAESTHESIA
     Dosage: 5 MG, IN DIVIDED DOSES
     Route: 042
  13. FENTANYL. [Interacting]
     Active Substance: FENTANYL
     Dosage: 100 MICROGRAM
     Route: 042
  14. METRONIDAZOLE. [Suspect]
     Active Substance: METRONIDAZOLE
     Indication: INFECTION
     Dosage: 500 MG, UNK
     Route: 042
  15. MIDAZOLAM. [Concomitant]
     Active Substance: MIDAZOLAM
     Indication: ANALGESIC THERAPY
     Dosage: 4 MG, UNK
     Route: 042
  16. FENTANYL. [Interacting]
     Active Substance: FENTANYL
     Dosage: 50 MICROGRAM
     Route: 042
  17. METOCLOPRAMIDE. [Interacting]
     Active Substance: METOCLOPRAMIDE
     Indication: PRODUCT USED FOR UNKNOWN INDICATION
     Dosage: 10 MG, UNK
     Route: 042
  18. ETOMIDATE. [Concomitant]
     Active Substance: ETOMIDATE
     Indication: GENERAL ANAESTHESIA
     Dosage: 20 MG, UNK
     Route: 042
  19. FLUOXETINE [Interacting]
     Active Substance: FLUOXETINE HYDROCHLORIDE
     Dosage: 10 MG, UNK
     Route: 065
  20. ONDANSETRON HYDROCHLORIDE. [Interacting]
     Active Substance: ONDANSETRON HYDROCHLORIDE
     Indication: PRODUCT USED FOR UNKNOWN INDICATION
     Dosage: 4 MG, UNK
     Route: 042
  21. ERTAPENEM. [Concomitant]
     Active Substance: ERTAPENEM SODIUM
     Indication: ANTIBIOTIC PROPHYLAXIS
     Dosage: UNK
     Route: 065
  22. CISATRACURIUM. [Concomitant]
     Active Substance: CISATRACURIUM
     Indication: HYPOTONIA
     Dosage: 2?8 MG IN DIVIDED DOSES
     Route: 042

REACTIONS (20)
  - Rhabdomyolysis [Unknown]
  - Muscle rigidity [Unknown]
  - Hyperpyrexia [Unknown]
  - Appendicitis perforated [Unknown]
  - Tachycardia [Unknown]
  - Agitation [Unknown]
  - Drug interaction [Unknown]
  - Hypertension [Unknown]
  - Metabolic acidosis [Unknown]
  - Dyskinesia [Unknown]
  - Nystagmus [Unknown]
  - Serotonin syndrome [Unknown]
  - Pseudomonas infection [Unknown]
  - Sepsis [Unknown]
  - Blood creatinine increased [Recovered/Resolved]
  - Confusional state [Unknown]
  - Hyperreflexia [Unknown]
  - White blood cell count increased [Unknown]
  - Restlessness [Unknown]
  - Trismus [Unknown]
